FAERS Safety Report 8464771-X (Version None)
Quarter: 2012Q2

REPORT INFORMATION
  Report Type: 
  Country: None (occurrence: None)
  Receive Date: 20120626
  Receipt Date: 20120620
  Transmission Date: 20120825
  Serious: Yes (Other)
  Sender: FDA-Public Use
  Company Number: GB-US-EMD SERONO, INC.-7141874

PATIENT
  Sex: Female

DRUGS (3)
  1. PROGESTERONE [Concomitant]
     Indication: PRODUCT USED FOR UNKNOWN INDICATION
  2. REBIF [Suspect]
     Indication: PRODUCT USED FOR UNKNOWN INDICATION
     Route: 058
     Dates: start: 20120118, end: 20120228
  3. REBIF [Suspect]
     Route: 058
     Dates: start: 20120301

REACTIONS (1)
  - VAGINAL HAEMORRHAGE [None]
